FAERS Safety Report 18507564 (Version 1)
Quarter: 2020Q4

REPORT INFORMATION
  Report Type: Spontaneous
  Country: SE (occurrence: SE)
  Receive Date: 20201116
  Receipt Date: 20201116
  Transmission Date: 20210114
  Serious: Yes (Other)
  Sender: FDA-Public Use
  Company Number: NVSC2020SE298476

PATIENT
  Age: 50 Year
  Sex: Female

DRUGS (3)
  1. RAPISCAN [Interacting]
     Active Substance: REGADENOSON
     Indication: SCAN MYOCARDIAL PERFUSION
     Dosage: UNK
     Route: 042
  2. SANDIMMUN [Suspect]
     Active Substance: CYCLOSPORINE
     Indication: PRODUCT USED FOR UNKNOWN INDICATION
     Dosage: UNK
     Route: 048
  3. RAPISCAN [Interacting]
     Active Substance: REGADENOSON
     Indication: DRUG PROVOCATION TEST

REACTIONS (5)
  - Nausea [Recovered/Resolved]
  - Tachycardia [Recovered/Resolved]
  - Atrioventricular block [Recovered/Resolved]
  - Malaise [Recovered/Resolved]
  - Drug interaction [Recovered/Resolved]

NARRATIVE: CASE EVENT DATE: 20200930
